FAERS Safety Report 10563531 (Version 1)
Quarter: 2014Q4

REPORT INFORMATION
  Report Type: Spontaneous
  Country: US (occurrence: US)
  Receive Date: 20141104
  Receipt Date: 20141104
  Transmission Date: 20150529
  Serious: Yes (Other)
  Sender: FDA-Public Use
  Company Number: US-BAYER-2014-155927

PATIENT
  Sex: Female

DRUGS (1)
  1. MILK OF MAGNESIA ORIGINAL [Suspect]
     Active Substance: MAGNESIUM HYDROXIDE
     Indication: CONSTIPATION
     Dosage: 4 TABLESPOON
     Route: 048

REACTIONS (1)
  - Blood pressure increased [Recovering/Resolving]

NARRATIVE: CASE EVENT DATE: 20141020
